FAERS Safety Report 21491975 (Version 1)
Quarter: 2022Q4

REPORT INFORMATION
  Report Type: Spontaneous
  Country: US (occurrence: US)
  Receive Date: 20221021
  Receipt Date: 20221021
  Transmission Date: 20230112
  Serious: No
  Sender: FDA-Public Use
  Company Number: US-GLAXOSMITHKLINE-USCH2022AMR039155

PATIENT
  Age: 90 Year
  Sex: Female
  Weight: 46.49 kg

DRUGS (3)
  1. IBUPROFEN [Suspect]
     Active Substance: IBUPROFEN
     Indication: Back pain
     Dosage: 200 MG ONE TIME
  2. PAXLOVID [Suspect]
     Active Substance: NIRMATRELVIR\RITONAVIR
     Indication: COVID-19
     Dosage: 3 DF, BID (THREE IN THE MORNING AND THREE IN THE EVENING BY MOUTH)
     Route: 048
     Dates: start: 20221005, end: 20221010
  3. COVID-19 VACCINE NOS [Suspect]
     Active Substance: COVID-19 VACCINE NOS
     Indication: COVID-19
     Dosage: SHOT IN THE ARM
     Dates: start: 20210217, end: 202108

REACTIONS (4)
  - Diarrhoea [Unknown]
  - Urinary tract infection [Unknown]
  - Productive cough [Recovering/Resolving]
  - COVID-19 [Unknown]

NARRATIVE: CASE EVENT DATE: 20221005
